FAERS Safety Report 21742690 (Version 1)
Quarter: 2022Q4

REPORT INFORMATION
  Report Type: Spontaneous
  Country: CA (occurrence: CA)
  Receive Date: 20221217
  Receipt Date: 20221217
  Transmission Date: 20230113
  Serious: Yes (Other)
  Sender: FDA-Public Use
  Company Number: CA-CELLTRION INC.-2022CA005499

PATIENT

DRUGS (5)
  1. INFLECTRA [Suspect]
     Active Substance: INFLIXIMAB-DYYB
     Indication: Crohn^s disease
     Dosage: 500 MG, EVERY 6 WEEKS (1-HOUR INFUSION)
     Route: 042
     Dates: start: 20220322
  2. INFLECTRA [Suspect]
     Active Substance: INFLIXIMAB-DYYB
     Dosage: 500 MG, EVERY 6 WEEKS (1-HOUR INFUSION)
     Route: 042
     Dates: start: 20220915
  3. INFLECTRA [Suspect]
     Active Substance: INFLIXIMAB-DYYB
     Dosage: 500 MG, EVERY 6 WEEKS (1-HOUR INFUSION)
     Route: 042
     Dates: start: 20221024
  4. INFLECTRA [Suspect]
     Active Substance: INFLIXIMAB-DYYB
     Dosage: 500 MG, EVERY 6 WEEKS (1-HOUR INFUSION)
     Route: 042
  5. INFLECTRA [Suspect]
     Active Substance: INFLIXIMAB-DYYB
     Dosage: 500 MG, EVERY 6 WEEKS (1-HOUR INFUSION)
     Route: 042
     Dates: start: 20221207

REACTIONS (12)
  - Haemorrhoids [Unknown]
  - Feeling hot [Unknown]
  - Chest pain [Not Recovered/Not Resolved]
  - Condition aggravated [Unknown]
  - Burning sensation [Not Recovered/Not Resolved]
  - COVID-19 [Unknown]
  - Arthralgia [Unknown]
  - Blood pressure increased [Unknown]
  - Lactose intolerance [Unknown]
  - Off label use [Unknown]
  - Off label use [Unknown]
  - Intentional product use issue [Unknown]

NARRATIVE: CASE EVENT DATE: 20220101
